FAERS Safety Report 4525954-4 (Version None)
Quarter: 2004Q4

REPORT INFORMATION
  Report Type: 
  Country: None (occurrence: None)
  Receive Date: 20041213
  Receipt Date: 20041213
  Transmission Date: 20050328
  Serious: Yes (Hospitalization)
  Sender: FDA-Public Use
  Company Number: None

PATIENT
  Sex: Male
  Weight: 85.7298 kg

DRUGS (8)
  1. CISPLATIN [Suspect]
     Indication: OESOPHAGEAL CARCINOMA
     Dosage: 200 MG  ONE TIME INTRAVENOUS
     Route: 042
     Dates: start: 20041130, end: 20041130
  2. PLAVIX [Concomitant]
  3. GLUCOPHAGE [Concomitant]
  4. LISINOPRIL AND HYDROCHLOROTHIAZIDE [Concomitant]
  5. LIPITOR [Concomitant]
  6. ATENOLOL [Concomitant]
  7. NORVASC [Concomitant]
  8. FLUOROURACIL [Concomitant]

REACTIONS (1)
  - RENAL FAILURE ACUTE [None]
